FAERS Safety Report 9565242 (Version 5)
Quarter: 2014Q3

REPORT INFORMATION
  Report Type: Spontaneous
  Country: US (occurrence: US)
  Receive Date: 20130930
  Receipt Date: 20140730
  Transmission Date: 20150326
  Serious: Yes (Death, Hospitalization, Other)
  Sender: FDA-Public Use
  Company Number: US-009507513-1201USA00883

PATIENT
  Sex: Female

DRUGS (2)
  1. FOSAMAX [Suspect]
     Active Substance: ALENDRONATE SODIUM
     Indication: OSTEOPOROSIS
     Dosage: UNK
     Route: 048
     Dates: start: 1999, end: 2009
  2. FOSAMAX [Suspect]
     Active Substance: ALENDRONATE SODIUM
     Indication: OSTEONECROSIS

REACTIONS (13)
  - Adverse event [Fatal]
  - Hip arthroplasty [Unknown]
  - Chronic obstructive pulmonary disease [Unknown]
  - Sedation [Unknown]
  - Low turnover osteopathy [Unknown]
  - Off label use [Recovered/Resolved]
  - Skeletal injury [Unknown]
  - Pain in extremity [Unknown]
  - Atelectasis [Unknown]
  - Heart rate irregular [Unknown]
  - Femur fracture [Unknown]
  - Extraskeletal ossification [Unknown]
  - Fall [Unknown]

NARRATIVE: CASE EVENT DATE: 1999
